FAERS Safety Report 7628708-5 (Version None)
Quarter: 2011Q3

REPORT INFORMATION
  Report Type: 
  Country: None (occurrence: None)
  Receive Date: 20110722
  Receipt Date: 20110708
  Transmission Date: 20111222
  Serious: Yes (Hospitalization)
  Sender: FDA-Public Use
  Company Number: US-BAYER-2011-055500

PATIENT
  Age: 63 Year
  Sex: Female
  Weight: 72.562 kg

DRUGS (1)
  1. ALEVE (CAPLET) [Suspect]
     Indication: HEADACHE
     Dosage: 2 DF, ONCE, BOTTLE COUNT 100S
     Dates: start: 20110622, end: 20110622

REACTIONS (8)
  - HYPERSENSITIVITY [None]
  - DIZZINESS [None]
  - VOMITING [None]
  - PRURITUS [None]
  - TINNITUS [None]
  - VISION BLURRED [None]
  - URINARY INCONTINENCE [None]
  - SYNCOPE [None]
